FAERS Safety Report 12169471 (Version 2)
Quarter: 2016Q1

REPORT INFORMATION
  Report Type: Spontaneous
  Country: GB (occurrence: GB)
  Receive Date: 20160310
  Receipt Date: 20160322
  Transmission Date: 20160526
  Serious: Yes (Other)
  Sender: FDA-Public Use
  Company Number: GB-ASTRAZENECA-2016SE23210

PATIENT
  Age: 16 Year
  Sex: Male
  Weight: 180 kg

DRUGS (3)
  1. OMEPRAZOLE. [Suspect]
     Active Substance: OMEPRAZOLE
     Route: 048
     Dates: end: 2016
  2. OMEPRAZOLE. [Suspect]
     Active Substance: OMEPRAZOLE
     Route: 048
     Dates: start: 2010, end: 201602
  3. OMEPRAZOLE. [Suspect]
     Active Substance: OMEPRAZOLE
     Route: 048

REACTIONS (78)
  - Muscle twitching [Unknown]
  - Chest pain [Unknown]
  - Rhinorrhoea [Unknown]
  - Hyperhidrosis [Unknown]
  - Mental impairment [Recovering/Resolving]
  - Cheilitis [Unknown]
  - Urine abnormality [Unknown]
  - Vomiting [Unknown]
  - Rash [Unknown]
  - Contusion [Unknown]
  - Abdominal pain upper [Recovered/Resolved]
  - Back pain [Unknown]
  - Gastrointestinal pain [Unknown]
  - Erythema [Unknown]
  - Vision blurred [Unknown]
  - Quality of life decreased [Recovering/Resolving]
  - Chills [Unknown]
  - Tremor [Unknown]
  - Flushing [Unknown]
  - Cough [Unknown]
  - Anxiety [Unknown]
  - Genital ulceration [Unknown]
  - Faeces discoloured [Recovered/Resolved]
  - Gastrooesophageal reflux disease [Unknown]
  - Stomatitis [Recovered/Resolved]
  - Flatulence [Unknown]
  - Heart rate irregular [Unknown]
  - Somnolence [Recovering/Resolving]
  - Decreased appetite [Recovering/Resolving]
  - Oropharyngeal pain [Unknown]
  - Fatigue [Unknown]
  - Nasal congestion [Unknown]
  - Bradycardia [Unknown]
  - Micturition urgency [Unknown]
  - Genital lesion [Unknown]
  - Diarrhoea [Unknown]
  - Skin exfoliation [Unknown]
  - Nausea [Unknown]
  - Haemorrhage [Unknown]
  - Dyspnoea [Unknown]
  - Tachycardia [Unknown]
  - Blister [Recovering/Resolving]
  - Palpitations [Unknown]
  - Dyskinesia [Unknown]
  - Nervousness [Unknown]
  - Abnormal dreams [Unknown]
  - Pain of skin [Unknown]
  - Blood urine present [Unknown]
  - Dizziness [Unknown]
  - Constipation [Unknown]
  - Insomnia [Unknown]
  - Dry mouth [Unknown]
  - Arthralgia [Unknown]
  - Malaise [Unknown]
  - Weight increased [Recovering/Resolving]
  - Mood altered [Unknown]
  - Dyspepsia [Unknown]
  - Mouth ulceration [Unknown]
  - Vertigo [Unknown]
  - Headache [Recovered/Resolved]
  - Myalgia [Unknown]
  - Abdominal pain [Unknown]
  - Pain in extremity [Unknown]
  - Dysuria [Recovering/Resolving]
  - Eye irritation [Unknown]
  - Pain [Unknown]
  - Ear congestion [Unknown]
  - Aphonia [Unknown]
  - Sneezing [Unknown]
  - Hypertension [Unknown]
  - Coating in mouth [Unknown]
  - Hallucination [Unknown]
  - Abnormal faeces [Recovered/Resolved]
  - Skin burning sensation [Unknown]
  - Pruritus [Unknown]
  - Depression [Unknown]
  - Confusional state [Unknown]
  - Pyrexia [Unknown]
